FAERS Safety Report 9204465 (Version 2)
Quarter: 2013Q4

REPORT INFORMATION
  Report Type: Report from Study
  Country: JP (occurrence: JP)
  Receive Date: 20130402
  Receipt Date: 20131004
  Transmission Date: 20140711
  Serious: Yes (Other)
  Sender: FDA-Public Use
  Company Number: JP-009507513-1304JPN000714

PATIENT
  Age: 68 Year
  Sex: Female
  Weight: 46 kg

DRUGS (8)
  1. REBETOL [Suspect]
     Indication: CHRONIC HEPATITIS C
     Dosage: 200MG AND 400MG; DAILY DOSE UNKNOWN
     Route: 048
     Dates: start: 20100115, end: 20100810
  2. REBETOL [Suspect]
     Dosage: 400 MG, QD
     Route: 048
     Dates: start: 20100811, end: 20101220
  3. FERON [Suspect]
     Indication: CHRONIC HEPATITIS C
     Dosage: 6 MILLION BILLION UNIT, QD
     Route: 041
     Dates: start: 20100115, end: 20100121
  4. FERON [Suspect]
     Dosage: 6 MILLION BILLION UNIT, Q3W
     Route: 041
     Dates: start: 20100123, end: 20101210
  5. EVISTA [Concomitant]
     Indication: OSTEOPOROSIS POSTMENOPAUSAL
     Dosage: 60 MG, QD
     Route: 048
     Dates: start: 20100115
  6. LOXONIN [Concomitant]
     Indication: PYREXIA
     Dosage: 180 MG ,DIVIDED DOSE FREQUENCY UNKNOWN
     Route: 048
     Dates: start: 20100115, end: 20100121
  7. LENDORMIN D [Concomitant]
     Indication: INSOMNIA
     Dosage: 0.25 MG DAILY
     Route: 048
     Dates: start: 20100210, end: 20101210
  8. LASIX (FUROSEMIDE) [Concomitant]
     Indication: CARDIAC FAILURE CONGESTIVE
     Dosage: 20 MG ,DIVIDED DOSE FREQUENCY UNKNOWN, POR
     Dates: start: 20100122, end: 20100122

REACTIONS (5)
  - Cardiac failure congestive [Recovered/Resolved]
  - Pyrexia [Recovered/Resolved]
  - Insomnia [Unknown]
  - Insomnia [Recovered/Resolved]
  - White blood cell count decreased [Recovering/Resolving]
